FAERS Safety Report 10011504 (Version 1)
Quarter: 2014Q1

REPORT INFORMATION
  Report Type: Spontaneous
  Country: US (occurrence: US)
  Receive Date: 20140314
  Receipt Date: 20140314
  Transmission Date: 20141002
  Serious: No
  Sender: FDA-Public Use
  Company Number: US-TEVA-469011USA

PATIENT
  Age: 24 Year
  Sex: Female
  Weight: 81.72 kg

DRUGS (3)
  1. PLAN B ONE-STEP [Suspect]
     Indication: POST COITAL CONTRACEPTION
     Dosage: 1.5 MILLIGRAM DAILY;
     Route: 048
     Dates: start: 20140224, end: 20140224
  2. TYLENOL [Concomitant]
     Indication: PAIN
     Route: 048
  3. AMOXICILLIN [Concomitant]
     Indication: WISDOM TEETH REMOVAL
     Dosage: QOD
     Route: 048
     Dates: end: 201402

REACTIONS (4)
  - Urine abnormality [Recovered/Resolved]
  - Dizziness [Recovered/Resolved]
  - Headache [Recovered/Resolved]
  - Fatigue [Recovered/Resolved]
